FAERS Safety Report 8251715-9 (Version None)
Quarter: 2012Q1

REPORT INFORMATION
  Report Type: 
  Country: None (occurrence: None)
  Receive Date: 20120321
  Receipt Date: 20110801
  Transmission Date: 20120608
  Serious: Yes (Other)
  Sender: FDA-Public Use
  Company Number: 998397

PATIENT
  Age: 47 Year
  Sex: Female
  Weight: 83.9154 kg

DRUGS (1)
  1. CIPROFLOXACIN [Suspect]
     Indication: PREOPERATIVE CARE
     Dosage: 400 MG, X1, INTRAVENOUS DRIP
     Route: 041

REACTIONS (2)
  - RASH MACULAR [None]
  - RASH [None]
